FAERS Safety Report 7517137-0 (Version None)
Quarter: 2011Q2

REPORT INFORMATION
  Report Type: 
  Country: None (occurrence: None)
  Receive Date: 20110601
  Receipt Date: 20110518
  Transmission Date: 20111010
  Serious: Yes (Other)
  Sender: FDA-Public Use
  Company Number: PHHY2011US43082

PATIENT
  Sex: Female

DRUGS (1)
  1. ELIDEL [Suspect]
     Indication: ECZEMA
     Dosage: 1 %, THRICE PER WEEK
     Route: 061

REACTIONS (3)
  - EXPIRED DRUG ADMINISTERED [None]
  - RIB FRACTURE [None]
  - FALL [None]
